FAERS Safety Report 8607382-5 (Version None)
Quarter: 2012Q3

REPORT INFORMATION
  Report Type: 
  Country: None (occurrence: None)
  Receive Date: 20120821
  Receipt Date: 20120814
  Transmission Date: 20120928
  Serious: No
  Sender: FDA-Public Use
  Company Number: US-PFIZER INC-2012199541

PATIENT
  Age: 40 Year
  Sex: Female
  Weight: 81.6 kg

DRUGS (4)
  1. CLIMARA [Concomitant]
     Dosage: 0.05 MG, UNK
  2. GENOTROPIN [Suspect]
     Dosage: 0.2 MG, EVERY DAY
     Route: 058
  3. HYDRACORT [Concomitant]
     Dosage: 1 %
  4. LEVOXYL [Concomitant]
     Dosage: 200 UG, UNK

REACTIONS (4)
  - OEDEMA PERIPHERAL [None]
  - TENDERNESS [None]
  - GAIT DISTURBANCE [None]
  - THERAPEUTIC RESPONSE UNEXPECTED [None]
